FAERS Safety Report 10526756 (Version 1)
Quarter: 2014Q4

REPORT INFORMATION
  Report Type: Spontaneous
  Country: GB (occurrence: GB)
  Receive Date: 20141020
  Receipt Date: 20141020
  Transmission Date: 20150528
  Serious: Yes (Death, Hospitalization, Other)
  Sender: FDA-Public Use
  Company Number: GB-ACCORD-026393

PATIENT
  Age: 56 Year
  Sex: Male

DRUGS (7)
  1. MORPHINE/MORPHINE HYDROCHLORIDE/MORPHINE SULFATE/MORPHINE TARTRATE [Concomitant]
     Active Substance: MORPHINE\MORPHINE HYDROCHLORIDE\MORPHINE SULFATE\MORPHINE TARTRATE
     Dosage: UNK UKN, UNK
  2. CO-BENELDOPA [Concomitant]
     Active Substance: BENSERAZIDE HYDROCHLORIDE\LEVODOPA
     Dosage: UNK UKN, UNK
  3. TRAMADOL/TRAMADOL HYDROCHLORIDE [Suspect]
     Active Substance: TRAMADOL HYDROCHLORIDE
     Indication: BACK PAIN
  4. CLOZARIL [Suspect]
     Active Substance: CLOZAPINE
     Indication: SCHIZOPHRENIA
     Dosage: UNK UKN, UNK
     Route: 048
     Dates: start: 20130307
  5. LORAZEPAM. [Concomitant]
     Active Substance: LORAZEPAM
     Dosage: UNK UKN, UNK
  6. PARACETAMOL [Concomitant]
     Active Substance: ACETAMINOPHEN
     Dosage: UNK UKN, UNK
  7. AMITRIPTYLINE [Concomitant]
     Active Substance: AMITRIPTYLINE
     Dosage: UNK

REACTIONS (11)
  - Pulmonary oedema [None]
  - Hepatic steatosis [None]
  - Left ventricular hypertrophy [None]
  - Confusional state [Unknown]
  - Pulmonary congestion [None]
  - Hepatic congestion [None]
  - Biliary hamartoma [None]
  - Unresponsive to stimuli [Unknown]
  - Toxicity to various agents [Unknown]
  - Sudden death [Fatal]
  - Hallucination [Unknown]

NARRATIVE: CASE EVENT DATE: 20130512
